FAERS Safety Report 7321365-7 (Version None)
Quarter: 2011Q1

REPORT INFORMATION
  Report Type: 
  Country: None (occurrence: None)
  Receive Date: 20110228
  Receipt Date: 20100331
  Transmission Date: 20110831
  Serious: Yes (Other)
  Sender: FDA-Public Use
  Company Number: US-PFIZER INC-2010042020

PATIENT
  Sex: Female
  Weight: 70.295 kg

DRUGS (3)
  1. FLUOXETINE [Concomitant]
     Dosage: UNK
  2. GEODON [Suspect]
     Indication: ASPERGER'S DISORDER
     Dosage: 30 MG, 1X/DAY
     Dates: start: 20090401, end: 20100301
  3. LAMICTAL [Concomitant]
     Dosage: UNK

REACTIONS (3)
  - MYALGIA [None]
  - WRONG TECHNIQUE IN DRUG USAGE PROCESS [None]
  - MALAISE [None]
